FAERS Safety Report 7539834-3 (Version None)
Quarter: 2011Q2

REPORT INFORMATION
  Report Type: 
  Country: None (occurrence: None)
  Receive Date: 20110609
  Receipt Date: 20110609
  Transmission Date: 20111010
  Serious: Yes (Life-Threatening)
  Sender: FDA-Public Use
  Company Number: None

PATIENT

DRUGS (1)
  1. GUAIFENESIN AND DEXTROMETHORPHAN HBR [Suspect]
     Indication: COUGH
     Dosage: 1 TABLET EVERY 4 HOURS PO
     Route: 048
     Dates: start: 20110607, end: 20110607

REACTIONS (3)
  - PAIN [None]
  - SWELLING FACE [None]
  - INFLAMMATION [None]
